FAERS Safety Report 6145858-3 (Version None)
Quarter: 2009Q2

REPORT INFORMATION
  Report Type: 
  Country: None (occurrence: None)
  Receive Date: 20090406
  Receipt Date: 20090406
  Transmission Date: 20091009
  Serious: No
  Sender: FDA-Public Use
  Company Number: None

PATIENT
  Age: 3 Year
  Sex: Female
  Weight: 24.91 kg

DRUGS (1)
  1. SYNTHROID [Suspect]
     Dosage: 125 MCG 1/2 TAB (62.5MCG 2 D) (THERAPY DATES: LIFETIME

REACTIONS (2)
  - LABORATORY TEST ABNORMAL [None]
  - TREATMENT FAILURE [None]
